FAERS Safety Report 12173210 (Version 2)
Quarter: 2016Q2

REPORT INFORMATION
  Report Type: Spontaneous
  Country: GB (occurrence: GB)
  Receive Date: 20160311
  Receipt Date: 20160419
  Transmission Date: 20160815
  Serious: Yes (Disabling, Other)
  Sender: FDA-Public Use
  Company Number: PHHY2016GB030333

PATIENT
  Age: 22 Year
  Sex: Male
  Weight: 83 kg

DRUGS (4)
  1. AMOXICILLIN. [Interacting]
     Active Substance: AMOXICILLIN
     Dosage: 500 MG,
     Route: 048
     Dates: start: 20160217, end: 20160221
  2. AMOXICILLIN. [Suspect]
     Active Substance: AMOXICILLIN
     Indication: OTITIS MEDIA
     Dosage: 500 MG
     Route: 048
     Dates: start: 20160217
  3. AMOXICILLIN. [Interacting]
     Active Substance: AMOXICILLIN
     Indication: EAR INFECTION BACTERIAL
     Dosage: 500 MG
     Route: 048
     Dates: start: 20160224
  4. CITALOPRAM [Interacting]
     Active Substance: CITALOPRAM HYDROBROMIDE
     Indication: ANXIETY
     Dosage: 30 MG, QD
     Route: 065

REACTIONS (4)
  - Agitated depression [Not Recovered/Not Resolved]
  - Suicidal ideation [Not Recovered/Not Resolved]
  - Drug interaction [Unknown]
  - Anxiety [Not Recovered/Not Resolved]
